FAERS Safety Report 4389877-6 (Version None)
Quarter: 2004Q2

REPORT INFORMATION
  Report Type: 
  Country: None (occurrence: None)
  Receive Date: 20040630
  Receipt Date: 20040614
  Transmission Date: 20050107
  Serious: Yes (Hospitalization)
  Sender: FDA-Public Use
  Company Number: 2004042736

PATIENT
  Age: 71 Year
  Sex: Male

DRUGS (1)
  1. CARDURA [Suspect]
     Indication: HYPERTENSION
     Dosage: 4 MG, ORAL    (DURATION: SOME YEARS - UNKNOWN)
     Route: 048

REACTIONS (2)
  - EJACULATION FAILURE [None]
  - INTESTINAL OBSTRUCTION [None]
